FAERS Safety Report 19932055 (Version 3)
Quarter: 2022Q1

REPORT INFORMATION
  Report Type: Report from Study
  Country: US (occurrence: US)
  Receive Date: 20211007
  Receipt Date: 20220115
  Transmission Date: 20220423
  Serious: Yes (Other)
  Sender: FDA-Public Use
  Company Number: US-REGENERON PHARMACEUTICALS, INC.-2021-90245

PATIENT
  Age: 27 Year
  Sex: Female

DRUGS (5)
  1. CASIRIVIMAB\IMDEVIMAB [Suspect]
     Active Substance: CASIRIVIMAB\IMDEVIMAB
     Indication: COVID-19
     Dosage: 1200 MG, SINGLE
     Route: 041
     Dates: start: 20210927, end: 20210927
  2. ALBUTEROL [Concomitant]
     Active Substance: ALBUTEROL
     Indication: Product used for unknown indication
     Dosage: 2 PUFFS Q6 HOURS AS NEEDED
     Route: 055
  3. PREDNISONE ALMUS [Concomitant]
     Indication: Product used for unknown indication
     Dosage: 20 MG, QD FOR 7 DAYS
  4. DOXYCYCLINE 3DDD [Concomitant]
     Indication: Product used for unknown indication
     Dosage: 100 MG, BID
  5. EMGALITY [Concomitant]
     Active Substance: GALCANEZUMAB-GNLM
     Indication: Product used for unknown indication
     Dosage: UNK, MONTHLY

REACTIONS (7)
  - Chest discomfort [Recovered/Resolved]
  - Flushing [Recovered/Resolved]
  - Blood pressure increased [Recovered/Resolved]
  - Heart rate increased [Recovered/Resolved]
  - Chills [Recovered/Resolved]
  - Nausea [Recovered/Resolved]
  - Headache [Recovered/Resolved]

NARRATIVE: CASE EVENT DATE: 20210927
